FAERS Safety Report 9880297 (Version 1)
Quarter: 2014Q1

REPORT INFORMATION
  Report Type: Spontaneous
  Country: FR (occurrence: FR)
  Receive Date: 20140207
  Receipt Date: 20140207
  Transmission Date: 20141002
  Serious: Yes (Hospitalization)
  Sender: FDA-Public Use
  Company Number: FR-MERCK-1401FRA014084

PATIENT
  Age: 60 Year
  Sex: Male

DRUGS (3)
  1. CANCIDAS [Suspect]
     Indication: SUPERINFECTION FUNGAL
     Dosage: UNK
     Route: 042
     Dates: start: 20121214, end: 20121217
  2. ATROVENT [Concomitant]
  3. BRICANYL [Concomitant]

REACTIONS (4)
  - Agranulocytosis [Recovered/Resolved]
  - Leukopenia [Recovered/Resolved]
  - Neutropenia [Recovered/Resolved]
  - Rash maculo-papular [Recovered/Resolved]
